FAERS Safety Report 5546980-2 (Version None)
Quarter: 2007Q4

REPORT INFORMATION
  Report Type: 
  Country: None (occurrence: None)
  Receive Date: 20071206
  Receipt Date: 20071127
  Transmission Date: 20080405
  Serious: Yes (Hospitalization)
  Sender: FDA-Public Use
  Company Number: 2007JP005059

PATIENT
  Age: 76 Year
  Sex: Female
  Weight: 47 kg

DRUGS (13)
  1. VESICARE [Suspect]
     Indication: HYPERTONIC BLADDER
     Dosage: 5 MG, UID/QD, ORAL
     Route: 048
     Dates: start: 20070925, end: 20071021
  2. CANDESARTAN CILEXETIL [Suspect]
     Indication: HYPERTENSION
     Dosage: 8 MG, UID/QD, ORAL; 50 MG, BID, ORAL
     Route: 048
     Dates: start: 20070927, end: 20071022
  3. CANDESARTAN CILEXETIL [Suspect]
     Indication: HYPERTENSION
     Dosage: 8 MG, UID/QD, ORAL; 50 MG, BID, ORAL
     Route: 048
     Dates: start: 20071030
  4. CANDESARTAN CILEXETIL [Suspect]
     Indication: HYPERTENSION
     Dosage: 8 MG, UID/QD, ORAL; 50 MG, BID, ORAL
     Route: 048
     Dates: start: 20071106
  5. BONALON (ALENDRONIC ACID) [Concomitant]
  6. WARFARIN POTASSIUM (WARFARIN POTASSIUM) [Concomitant]
  7. DEPAS (ETIZOLAM) TABLET [Concomitant]
  8. BAYASPIRIN TABLET [Concomitant]
  9. CARVEDILOL [Concomitant]
  10. THYRADIN S (LEVOTHYROXINE SODIUM) TABLET [Concomitant]
  11. RENIVEZE (ENALAPRIL MALEATE) TABLET [Concomitant]
  12. SUNRYTHM (PILSICAINIDE HYDROCHLORIDE) CAPSULE [Concomitant]
  13. ZOPICLONE (ZOPICLONE) TABLET [Concomitant]

REACTIONS (4)
  - DIZZINESS POSTURAL [None]
  - HEPATIC FUNCTION ABNORMAL [None]
  - MALAISE [None]
  - VOMITING [None]
